FAERS Safety Report 5655260-6 (Version None)
Quarter: 2008Q1

REPORT INFORMATION
  Report Type: 
  Country: None (occurrence: None)
  Receive Date: 20080307
  Receipt Date: 20080229
  Transmission Date: 20080703
  Serious: Yes (Other)
  Sender: FDA-Public Use
  Company Number: B0505872A

PATIENT
  Age: 40 Year
  Sex: Male
  Weight: 87 kg

DRUGS (8)
  1. LAMICTAL [Suspect]
     Indication: EPILEPSY
     Dosage: 200MG TWICE PER DAY
     Route: 048
  2. WARFARIN SODIUM [Suspect]
     Dosage: 12MG PER DAY
  3. ALFUZOSIN HCL [Concomitant]
     Dosage: 10MG PER DAY
  4. TEGRETOL [Concomitant]
     Dosage: 1600MG PER DAY
  5. CLOBAZAM [Concomitant]
     Dosage: 40MG PER DAY
  6. RISPERIDONE [Concomitant]
     Dosage: 1MG PER DAY
  7. LANSOPRAZOLE [Concomitant]
     Dosage: 30MG PER DAY
  8. EPILIM [Concomitant]
     Dosage: 1600MG PER DAY

REACTIONS (4)
  - COAGULOPATHY [None]
  - DRUG ADMINISTRATION ERROR [None]
  - DRUG INTERACTION [None]
  - INTERNATIONAL NORMALISED RATIO INCREASED [None]
